FAERS Safety Report 12482586 (Version 2)
Quarter: 2016Q2

REPORT INFORMATION
  Report Type: Spontaneous
  Country: US (occurrence: US)
  Receive Date: 20160620
  Receipt Date: 20160621
  Transmission Date: 20160815
  Serious: Yes (Other)
  Sender: FDA-Public Use
  Company Number: US-009507513-1606USA007780

PATIENT
  Age: 28 Year
  Sex: Female
  Weight: 101.59 kg

DRUGS (1)
  1. NEXPLANON [Suspect]
     Active Substance: ETONOGESTREL
     Indication: CONTRACEPTION
     Dosage: EVERY THREE YEARS, LEFT ARM
     Route: 059
     Dates: start: 20160608

REACTIONS (2)
  - Headache [Unknown]
  - Thrombosis [Unknown]

NARRATIVE: CASE EVENT DATE: 20160608
